FAERS Safety Report 21104490 (Version 1)
Quarter: 2022Q3

REPORT INFORMATION
  Report Type: Spontaneous
  Country: US (occurrence: US)
  Receive Date: 20220720
  Receipt Date: 20220720
  Transmission Date: 20221026
  Serious: No
  Sender: FDA-Public Use
  Company Number: US-AMNEAL PHARMACEUTICALS-2021-AMRX-04257

PATIENT
  Sex: Female
  Weight: 74.83 kg

DRUGS (2)
  1. ESTRADIOL [Suspect]
     Active Substance: ESTRADIOL
     Indication: Hormone therapy
     Dosage: UNK UNK, 2 /WEEK, 1 INSERT DAILY FOR 2 WEEKS, FOLLOWED BY 1 INSERT TWICE WEEKLY
     Route: 067
     Dates: start: 20201014
  2. LISINOPRIL [Concomitant]
     Active Substance: LISINOPRIL
     Indication: Hypertension
     Route: 065

REACTIONS (4)
  - Pain [Unknown]
  - Pruritus [Unknown]
  - Unevaluable event [Unknown]
  - Hypersensitivity [Unknown]
